FAERS Safety Report 10067843 (Version 2)
Quarter: 2014Q2

REPORT INFORMATION
  Report Type: Spontaneous
  Country: US (occurrence: None)
  Receive Date: 20140407
  Receipt Date: 20140414
  Transmission Date: 20141212
  Serious: Yes (Other)
  Sender: FDA-Public Use
  Company Number: AUR-APL-2014-04122

PATIENT
  Sex: Male

DRUGS (1)
  1. GLIBENCLAMIDE [Suspect]
     Indication: DIABETES MELLITUS

REACTIONS (2)
  - Knee arthroplasty [None]
  - Thyroid disorder [None]
